FAERS Safety Report 4698312-X (Version None)
Quarter: 2005Q2

REPORT INFORMATION
  Report Type: 
  Country: None (occurrence: None)
  Receive Date: 20050621
  Receipt Date: 20050615
  Transmission Date: 20051028
  Serious: Yes (Life-Threatening, Hospitalization)
  Sender: FDA-Public Use
  Company Number: BRO-008734

PATIENT
  Age: 45 Year
  Sex: Female

DRUGS (2)
  1. MULTIHANCE [Suspect]
     Indication: NUCLEAR MAGNETIC RESONANCE IMAGING
     Dosage: 15 ML IV A FEW SECS
     Route: 042
     Dates: start: 20050504, end: 20050504
  2. MULTIHANCE [Suspect]
     Indication: SPINAL CORD DISORDER
     Dosage: 15 ML IV A FEW SECS
     Route: 042
     Dates: start: 20050504, end: 20050504

REACTIONS (4)
  - CONTRAST MEDIA REACTION [None]
  - NAUSEA [None]
  - PARAESTHESIA [None]
  - SWELLING [None]
